FAERS Safety Report 5487391-8 (Version None)
Quarter: 2007Q4

REPORT INFORMATION
  Report Type: 
  Country: None (occurrence: None)
  Receive Date: 20071016
  Receipt Date: 20071003
  Transmission Date: 20080405
  Serious: No
  Sender: FDA-Public Use
  Company Number: US-BOEHRINGER INGELHEIM PHARMACEUTICALS, INC.-2007-BP-20743BP

PATIENT
  Sex: Female

DRUGS (7)
  1. CATAPRES-TTS-1 [Suspect]
     Indication: HYPERTENSION
     Route: 061
     Dates: start: 20070313
  2. ZIAC [Concomitant]
  3. IMDUR [Concomitant]
  4. PACERONE [Concomitant]
  5. TOPROL-XL [Concomitant]
  6. LISINOPRIL [Concomitant]
  7. NORVASC [Concomitant]

REACTIONS (1)
  - THERAPEUTIC RESPONSE DECREASED [None]
